FAERS Safety Report 11718810 (Version 3)
Quarter: 2015Q4

REPORT INFORMATION
  Report Type: Spontaneous
  Country: JP (occurrence: JP)
  Receive Date: 20151110
  Receipt Date: 20151130
  Transmission Date: 20160304
  Serious: Yes (Hospitalization, Other)
  Sender: FDA-Public Use
  Company Number: JP-GLAXOSMITHKLINE-JP2015JPN158032

PATIENT
  Age: 82 Year
  Sex: Male

DRUGS (4)
  1. TIOTROPIUM BROMIDE HYDRATE [Concomitant]
  2. MONTELUKAST SODIUM. [Concomitant]
     Active Substance: MONTELUKAST SODIUM
  3. SERETIDE [Suspect]
     Active Substance: FLUTICASONE FUROATE\SALMETEROL XINAFOATE
     Indication: CHRONIC OBSTRUCTIVE PULMONARY DISEASE
     Dosage: UNK
     Route: 055
  4. SERETIDE [Suspect]
     Active Substance: FLUTICASONE FUROATE\SALMETEROL XINAFOATE
     Indication: ASTHMA

REACTIONS (4)
  - Adrenal insufficiency [Unknown]
  - Hypoglycaemia [Recovering/Resolving]
  - Depressed level of consciousness [Recovering/Resolving]
  - Ketoacidosis [Unknown]
